FAERS Safety Report 9331542 (Version 3)
Quarter: 2014Q1

REPORT INFORMATION
  Report Type: Spontaneous
  Country: US (occurrence: US)
  Receive Date: 20130605
  Receipt Date: 20140129
  Transmission Date: 20141002
  Serious: No
  Sender: FDA-Public Use
  Company Number: US-PFIZER INC-2013165268

PATIENT
  Age: 43 Year
  Sex: Female

DRUGS (6)
  1. ENBREL [Suspect]
     Indication: PRODUCT USED FOR UNKNOWN INDICATION
     Dosage: UNK
     Route: 065
  2. NEURONTIN [Concomitant]
     Dosage: 300 MG, 2X/DAY
  3. RESTASIS [Concomitant]
     Dosage: UNK, 1X/DAY
  4. ADVAIR [Concomitant]
     Dosage: 1 DF (1 PUFF), 1X/DAY
  5. PLAQUENIL [Concomitant]
     Dosage: 200 MG, 2X/DAY
  6. SYNTHROID [Concomitant]
     Dosage: 125 UG, 1X/DAY

REACTIONS (1)
  - Drug ineffective [Unknown]
